FAERS Safety Report 16355713 (Version 1)
Quarter: 2019Q2

REPORT INFORMATION
  Report Type: Spontaneous
  Country: FR (occurrence: FR)
  Receive Date: 20190525
  Receipt Date: 20190525
  Transmission Date: 20190711
  Serious: Yes (Death)
  Sender: FDA-Public Use
  Company Number: FR-TEVA-2019-FR-1053598

PATIENT
  Age: 42 Year
  Sex: Male
  Weight: 88 kg

DRUGS (6)
  1. COVERSYL /FRA/ [Suspect]
     Active Substance: PERINDOPRIL
     Indication: HYPERTENSION
     Route: 048
     Dates: start: 20110128
  2. OMEPRAZOLE. [Suspect]
     Active Substance: OMEPRAZOLE
     Indication: PROPHYLAXIS AGAINST GASTROINTESTINAL ULCER
     Route: 048
     Dates: start: 201012
  3. KARDEGIC [Suspect]
     Active Substance: ASPIRIN DL-LYSINE
     Indication: VASCULAR STENT INSERTION
     Route: 048
     Dates: start: 201012
  4. ATENOLOL. [Suspect]
     Active Substance: ATENOLOL
     Indication: PROPHYLAXIS
     Route: 048
     Dates: start: 20110112
  5. CRESTOR [Suspect]
     Active Substance: ROSUVASTATIN CALCIUM
     Indication: DYSLIPIDAEMIA
     Dosage: STRENGTH: 10 MG
     Route: 048
     Dates: start: 201012
  6. PLAVIX [Suspect]
     Active Substance: CLOPIDOGREL BISULFATE
     Indication: VASCULAR STENT INSERTION
     Route: 048
     Dates: start: 20110112

REACTIONS (2)
  - Haemorrhagic stroke [Fatal]
  - Cerebral haemorrhage [Fatal]

NARRATIVE: CASE EVENT DATE: 20110731
